FAERS Safety Report 14730270 (Version 1)
Quarter: 2018Q2

REPORT INFORMATION
  Report Type: Spontaneous
  Country: US (occurrence: US)
  Receive Date: 20180402
  Receipt Date: 20180402
  Transmission Date: 20180711
  Serious: Yes (Other)
  Sender: FDA-Public Use
  Company Number: None

PATIENT
  Age: 17 Year
  Sex: Male

DRUGS (1)
  1. GAMMAGARD [Suspect]
     Active Substance: HUMAN IMMUNOGLOBULIN G
     Indication: IMMUNODEFICIENCY COMMON VARIABLE
     Dosage: 40G Q3W PIV
     Route: 042
     Dates: start: 20180329, end: 20180329

REACTIONS (6)
  - Infusion related reaction [None]
  - Respiratory rate decreased [None]
  - Dyspnoea [None]
  - Chest discomfort [None]
  - Headache [None]
  - Chills [None]

NARRATIVE: CASE EVENT DATE: 20180329
